FAERS Safety Report 8441349-5 (Version None)
Quarter: 2012Q2

REPORT INFORMATION
  Report Type: 
  Country: None (occurrence: None)
  Receive Date: 20120615
  Receipt Date: 20120601
  Transmission Date: 20120825
  Serious: Yes (Other)
  Sender: FDA-Public Use
  Company Number: US-BRISTOL-MYERS SQUIBB COMPANY-16475766

PATIENT
  Age: 24 Year
  Sex: Female

DRUGS (3)
  1. ADRIAMYCIN PFS [Suspect]
     Indication: BREAST CANCER
     Dosage: NO OF CYCLES 4
  2. CYTOXAN [Suspect]
     Indication: BREAST CANCER
     Dosage: NO OF CYCLES 4
  3. TAXOL [Suspect]
     Indication: BREAST CANCER
     Dosage: NO OF CYCLES 4

REACTIONS (1)
  - COGNITIVE DISORDER [None]
